FAERS Safety Report 9403146 (Version 1)
Quarter: 2013Q3

REPORT INFORMATION
  Report Type: Spontaneous
  Country: FR (occurrence: FR)
  Receive Date: 20130716
  Receipt Date: 20130716
  Transmission Date: 20140515
  Serious: Yes (Life-Threatening, Hospitalization)
  Sender: FDA-Public Use
  Company Number: FR-GLAXOSMITHKLINE-B0906411A

PATIENT
  Age: 77 Year
  Sex: Male

DRUGS (10)
  1. HYCAMTIN [Suspect]
     Indication: NEUROENDOCRINE CARCINOMA
     Dosage: 2.9MG CYCLIC
     Route: 042
     Dates: start: 20130430, end: 20130528
  2. INNOHEP [Suspect]
     Indication: PULMONARY EMBOLISM
     Dosage: 14000IU PER DAY
     Route: 058
     Dates: start: 20130426, end: 20130511
  3. SERETIDE [Concomitant]
  4. INEGY [Concomitant]
  5. DUROGESIC [Concomitant]
  6. ACTISKENAN [Concomitant]
  7. INEXIUM [Concomitant]
  8. PLAVIX [Concomitant]
  9. CARDENSIEL [Concomitant]
  10. PRAXILENE [Concomitant]

REACTIONS (3)
  - Febrile bone marrow aplasia [Recovered/Resolved]
  - Thrombocytopenia [Recovered/Resolved]
  - Anaemia [Recovering/Resolving]
